FAERS Safety Report 4974851-9 (Version None)
Quarter: 2006Q1

REPORT INFORMATION
  Report Type: 
  Country: None (occurrence: None)
  Receive Date: 20060215
  Receipt Date: 20050111
  Transmission Date: 20060701
  Serious: Yes (Hospitalization)
  Sender: FDA-Public Use
  Company Number: 2004109327

PATIENT
  Sex: Male

DRUGS (2)
  1. DAYPRO [Suspect]
     Indication: ILL-DEFINED DISORDER
     Dosage: 600 MG
  2. VICODIN [Suspect]
     Indication: ILL-DEFINED DISORDER

REACTIONS (1)
  - COMA [None]
